FAERS Safety Report 6335960-5 (Version None)
Quarter: 2009Q3

REPORT INFORMATION
  Report Type: 
  Country: None (occurrence: None)
  Receive Date: 20090901
  Receipt Date: 20090821
  Transmission Date: 20100115
  Serious: Yes (Hospitalization, Other)
  Sender: FDA-Public Use
  Company Number: GB-RANBAXY-2009RR-26391

PATIENT
  Age: 51 Year
  Sex: Female
  Weight: 102.96 kg

DRUGS (12)
  1. FRUSEMIDE [Suspect]
     Indication: JOINT SWELLING
     Dosage: 20 MG, UNK
     Route: 048
     Dates: start: 20060901, end: 20090709
  2. AMITRIPTYLINE [Suspect]
     Indication: DEPRESSION
     Dosage: 150 MG, QD
     Route: 048
     Dates: start: 20051101
  3. IBUPROFEN [Suspect]
     Indication: PAIN
     Dosage: 400 MG, TID
     Route: 048
     Dates: start: 20060301
  4. RISPERIDONE [Suspect]
     Indication: SCHIZOAFFECTIVE DISORDER
     Dosage: 3 MG, BID
     Route: 048
     Dates: start: 20070730
  5. DIHYDROCODEINE TARTRATE [Concomitant]
  6. FYBOGEL [Concomitant]
  7. LACTULOSE [Concomitant]
  8. LANSOPRAZOLE [Concomitant]
  9. MAXEPA [Concomitant]
  10. NULYTELY [Concomitant]
  11. PARACETAMOL [Concomitant]
  12. VALPROATE SODIUM [Concomitant]

REACTIONS (2)
  - BLOOD OSMOLARITY DECREASED [None]
  - BURNING SENSATION [None]
